FAERS Safety Report 4284975-X (Version None)
Quarter: 2004Q1

REPORT INFORMATION
  Report Type: 
  Country: None (occurrence: None)
  Receive Date: 20040202
  Receipt Date: 20040126
  Transmission Date: 20041129
  Serious: Yes (Life-Threatening)
  Sender: FDA-Public Use
  Company Number: 2003-02-2730

PATIENT
  Age: 38 Year
  Sex: Female
  Weight: 70 kg

DRUGS (2)
  1. NASONEX [Suspect]
     Indication: SINUS DISORDER
     Dosage: 2 PUFFS NASAL SPRAY
     Route: 045
     Dates: start: 20030121, end: 20030121
  2. EFAMAST [Concomitant]

REACTIONS (4)
  - CIRCULATORY COLLAPSE [None]
  - COLD SWEAT [None]
  - DIZZINESS [None]
  - LOSS OF CONSCIOUSNESS [None]
